FAERS Safety Report 4995399-1 (Version None)
Quarter: 2006Q2

REPORT INFORMATION
  Report Type: 
  Country: None (occurrence: None)
  Receive Date: 20060503
  Receipt Date: 20060421
  Transmission Date: 20061013
  Serious: Yes (Other)
  Sender: FDA-Public Use
  Company Number: T200600262

PATIENT
  Age: 48 Year
  Sex: Female

DRUGS (5)
  1. HYDROCODONE BITARTRATE/APAP (HYDROCODONE BITARTRATE, ACETAMINOPHEN) TA [Suspect]
     Indication: PAIN
     Dosage: 1 TABLET Q4HR, PRN, ORAL
     Route: 048
     Dates: start: 20060420, end: 20060420
  2. HYDROXYCHLOROQUINE (HYDROXYCHLOROQUINE) [Concomitant]
  3. SKELAXIN [Concomitant]
  4. METHOTREXATE [Concomitant]
  5. DIFLUNISAL [Concomitant]

REACTIONS (2)
  - LOSS OF CONSCIOUSNESS [None]
  - VOMITING [None]
